FAERS Safety Report 15517649 (Version 1)
Quarter: 2018Q4

REPORT INFORMATION
  Report Type: Spontaneous
  Country: US (occurrence: US)
  Receive Date: 20181011
  Receipt Date: 20181011
  Transmission Date: 20190205
  Serious: No
  Sender: FDA-Public Use
  Company Number: None

PATIENT
  Age: 43 Year

DRUGS (1)
  1. COSENTYX [Suspect]
     Active Substance: SECUKINUMAB
     Dates: start: 201801

REACTIONS (3)
  - Disease recurrence [None]
  - Arthralgia [None]
  - Psoriasis [None]

NARRATIVE: CASE EVENT DATE: 20181010
